FAERS Safety Report 9997686 (Version 2)
Quarter: 2014Q2

REPORT INFORMATION
  Report Type: Spontaneous
  Country: BR (occurrence: BR)
  Receive Date: 20140311
  Receipt Date: 20140402
  Transmission Date: 20141212
  Serious: Yes (Other)
  Sender: FDA-Public Use
  Company Number: BR-009507513-1403BRA004639

PATIENT
  Age: 69 Year
  Sex: Female
  Weight: 44 kg

DRUGS (6)
  1. COZAAR [Suspect]
     Indication: HYPERTENSION
     Dosage: 50 MG, QD
     Route: 048
     Dates: start: 201310
  2. HYDROCHLOROTHIAZIDE [Concomitant]
     Indication: HYPERTENSION
     Dosage: 12.5 MG, QD
     Dates: start: 201310
  3. ALENDRONATE SODIUM (NON MERCK - MAGISTRAL FORMULA) [Concomitant]
     Indication: OSTEOPOROSIS
     Dosage: UNK, UNKNOWN
     Route: 048
     Dates: start: 1994
  4. ATENOLOL [Concomitant]
     Indication: HYPERTENSION
     Dosage: 25 MG, QD
     Route: 048
  5. SOY ISOFLAVONES [Concomitant]
     Indication: HORMONE REPLACEMENT THERAPY
     Dosage: UNK
     Route: 048
     Dates: start: 1994
  6. CARBAMAZEPINE [Concomitant]
     Indication: PETIT MAL EPILEPSY
     Dosage: 600 MG, QD
     Route: 048
     Dates: start: 2000

REACTIONS (6)
  - Epilepsy [Recovered/Resolved]
  - Petit mal epilepsy [Recovered/Resolved]
  - Somnolence [Unknown]
  - Drug administration error [Unknown]
  - Drug administration error [Unknown]
  - No adverse event [Unknown]
